FAERS Safety Report 5069683-X (Version None)
Quarter: 2006Q3

REPORT INFORMATION
  Report Type: 
  Country: None (occurrence: None)
  Receive Date: 20060802
  Receipt Date: 20060802
  Transmission Date: 20061208
  Serious: Yes (Life-Threatening, Hospitalization)
  Sender: FDA-Public Use
  Company Number: None

PATIENT
  Age: 38 Year
  Sex: Female
  Weight: 61.7 kg

DRUGS (18)
  1. AZATHIOPRINE [Suspect]
     Indication: IMMUNOSUPPRESSION
     Dosage: 75 MG TWO TIMES DAILY PO
     Route: 048
     Dates: start: 20050815, end: 20050821
  2. AZATHIOPRINE [Suspect]
     Indication: LUNG TRANSPLANT
     Dosage: 75 MG TWO TIMES DAILY PO
     Route: 048
     Dates: start: 20050815, end: 20050821
  3. CYCLOSPORINE [Concomitant]
  4. AZATHIAPRINE [Concomitant]
  5. PREDNISONE [Concomitant]
  6. METHYLPREDNISOLONE [Concomitant]
  7. MULTIVITAMIN [Concomitant]
  8. SULFAMETHOXAZOLE + TRIMETHOPRIM [Concomitant]
  9. VALGANCICLOVIR HCL [Concomitant]
  10. ESOMEPRAZOLE MAGNESIUM [Concomitant]
  11. ATORVASTATIN CALCIUM [Concomitant]
  12. DILTIAZEM HCL [Concomitant]
  13. ATEMP;P; [Concomitant]
  14. CLONIDINE [Concomitant]
  15. CLOTRIMAZOLE TROCHES [Concomitant]
  16. ONDANSETRON HCL [Concomitant]
  17. DOCUSATE SODIUM [Concomitant]
  18. OSYTERSHELL CALCIUM PLUS [Concomitant]

REACTIONS (6)
  - ASCITES [None]
  - BILE DUCT STONE [None]
  - CHOLECYSTECTOMY [None]
  - FLUID RETENTION [None]
  - PANCREATIC PSEUDOCYST [None]
  - PANCREATITIS [None]
